FAERS Safety Report 7827383-4 (Version None)
Quarter: 2011Q4

REPORT INFORMATION
  Report Type: 
  Country: None (occurrence: None)
  Receive Date: 20111020
  Receipt Date: 20111011
  Transmission Date: 20120403
  Serious: Yes (Other)
  Sender: FDA-Public Use
  Company Number: ES-JNJFOC-20111006442

PATIENT
  Age: 93 Year
  Sex: Female

DRUGS (9)
  1. INVEGA [Suspect]
     Indication: PRODUCT USED FOR UNKNOWN INDICATION
     Route: 065
     Dates: start: 20110223, end: 20110225
  2. OMEPRAZOLE [Concomitant]
     Route: 065
  3. AMLODIPINE BESYLATE [Concomitant]
     Route: 065
  4. LOSARTAN POTASSIUM [Concomitant]
     Route: 065
  5. ALLOPURINOL [Concomitant]
     Route: 065
  6. INSULIN [Concomitant]
     Route: 065
  7. ASPIRIN [Concomitant]
     Route: 065
  8. DIAZEPAM [Concomitant]
     Route: 065
  9. CITICOLINE SODIUM [Concomitant]
     Route: 065

REACTIONS (3)
  - SOMNOLENCE [None]
  - LOSS OF CONSCIOUSNESS [None]
  - STUPOR [None]
